FAERS Safety Report 10467938 (Version 1)
Quarter: 2014Q3

REPORT INFORMATION
  Report Type: Spontaneous
  Country: US (occurrence: US)
  Receive Date: 20140922
  Receipt Date: 20140922
  Transmission Date: 20150326
  Serious: Yes (Other)
  Sender: FDA-Public Use
  Company Number: US-ELI_LILLY_AND_COMPANY-US201409005209

PATIENT
  Sex: Female

DRUGS (1)
  1. INSULIN HUMAN [Suspect]
     Active Substance: INSULIN HUMAN
     Indication: TYPE 2 DIABETES MELLITUS
     Dosage: 0.6 U, TID
     Route: 058
     Dates: start: 201309

REACTIONS (3)
  - Medication error [Unknown]
  - Blood glucose increased [Recovered/Resolved]
  - Wrong technique in drug usage process [Not Recovered/Not Resolved]
